FAERS Safety Report 19773387 (Version 1)
Quarter: 2021Q3

REPORT INFORMATION
  Report Type: Spontaneous
  Country: US (occurrence: US)
  Receive Date: 20210901
  Receipt Date: 20210901
  Transmission Date: 20211014
  Serious: Yes (Other)
  Sender: FDA-Public Use
  Company Number: US-PFIZER INC-202101096294

PATIENT
  Age: 75 Year
  Sex: Male

DRUGS (1)
  1. VYNDAMAX [Suspect]
     Active Substance: TAFAMIDIS
     Indication: AMYLOIDOSIS SENILE
     Dosage: 61 MG

REACTIONS (6)
  - Dyspnoea [Unknown]
  - Left ventricular failure [Unknown]
  - Atrial fibrillation [Unknown]
  - Off label use [Unknown]
  - Sleep apnoea syndrome [Unknown]
  - Essential hypertension [Unknown]
